FAERS Safety Report 20233286 (Version 2)
Quarter: 2022Q1

REPORT INFORMATION
  Report Type: Spontaneous
  Country: US (occurrence: US)
  Receive Date: 20211227
  Receipt Date: 20220204
  Transmission Date: 20220424
  Serious: Yes (Life-Threatening, Hospitalization)
  Sender: FDA-Public Use
  Company Number: US-TEVA-2021-US-1993079

PATIENT
  Age: 39 Year
  Sex: Male

DRUGS (4)
  1. ESTRADIOL [Suspect]
     Active Substance: ESTRADIOL
     Indication: Sexual dysfunction
     Dosage: 2 MILLIGRAM DAILY;
     Route: 065
  2. RISPERIDONE [Suspect]
     Active Substance: RISPERIDONE
     Indication: Hallucination, auditory
     Dosage: 1 MILLIGRAM DAILY;
     Route: 065
  3. RISPERIDONE [Suspect]
     Active Substance: RISPERIDONE
     Indication: Paranoia
  4. DUTASTERIDE [Suspect]
     Active Substance: DUTASTERIDE
     Indication: Hormone suppression therapy
     Dosage: .5 MILLIGRAM DAILY;
     Route: 065

REACTIONS (6)
  - Insomnia [Unknown]
  - Musculoskeletal stiffness [Recovered/Resolved]
  - Hyperhidrosis [Unknown]
  - Hypoxia [Recovered/Resolved]
  - Pulmonary embolism [Unknown]
  - Drug abuse [Recovered/Resolved]
